FAERS Safety Report 16864957 (Version 2)
Quarter: 2019Q4

REPORT INFORMATION
  Report Type: Spontaneous
  Country: BR (occurrence: BR)
  Receive Date: 20190929
  Receipt Date: 20191113
  Transmission Date: 20200122
  Serious: Yes (Other)
  Sender: FDA-Public Use
  Company Number: PHHY2019BR226071

PATIENT
  Age: 70 Year
  Sex: Male

DRUGS (1)
  1. AMOXICILLIN AND CLAVULANATE POTASSIUM [Suspect]
     Active Substance: AMOXICILLIN\CLAVULANATE POTASSIUM
     Indication: PROSTATIC DISORDER
     Dosage: 3 OT, QD
     Route: 048

REACTIONS (5)
  - Prostate infection [Unknown]
  - Drug ineffective [Unknown]
  - Bladder hypertrophy [Unknown]
  - Haemorrhage urinary tract [Unknown]
  - Feeling abnormal [Recovering/Resolving]

NARRATIVE: CASE EVENT DATE: 20190923
